FAERS Safety Report 7385946-7 (Version None)
Quarter: 2011Q1

REPORT INFORMATION
  Report Type: 
  Country: None (occurrence: None)
  Receive Date: 20110331
  Receipt Date: 20110318
  Transmission Date: 20110831
  Serious: No
  Sender: FDA-Public Use
  Company Number: US-ASTRAZENECA-2008UW09559

PATIENT
  Age: 19877 Day
  Sex: Female
  Weight: 97.5 kg

DRUGS (11)
  1. SEROQUEL [Suspect]
     Indication: BIPOLAR DISORDER
     Dosage: 200 TO 500 MG
     Route: 048
     Dates: start: 20050208, end: 20070605
  2. RISPERDAL [Concomitant]
  3. TOPAMAX [Concomitant]
     Dates: start: 20051028
  4. ZETIA [Concomitant]
     Dates: start: 20080101
  5. SEROQUEL [Suspect]
     Route: 048
     Dates: start: 20051102
  6. SIMVASTATIN [Concomitant]
     Dates: start: 20080101
  7. PAXIL [Concomitant]
     Dates: start: 20080101
  8. LEVOTHYROXINE SODIUM [Concomitant]
     Dates: start: 20080101
  9. SEROQUEL [Suspect]
     Indication: SLEEP DISORDER
     Dosage: 200 TO 500 MG
     Route: 048
     Dates: start: 20050208, end: 20070605
  10. LISINOPRIL [Concomitant]
     Dates: start: 20080101
  11. SEROQUEL [Suspect]
     Route: 048
     Dates: start: 20051102

REACTIONS (1)
  - TYPE 2 DIABETES MELLITUS [None]
